FAERS Safety Report 15271237 (Version 1)
Quarter: 2018Q3

REPORT INFORMATION
  Report Type: Spontaneous
  Country: UA (occurrence: UA)
  Receive Date: 20180813
  Receipt Date: 20180813
  Transmission Date: 20181010
  Serious: Yes (Death)
  Sender: FDA-Public Use
  Company Number: UA-PFIZER INC-2018324108

PATIENT
  Sex: Male

DRUGS (2)
  1. OLANZAPINE. [Concomitant]
     Active Substance: OLANZAPINE
     Indication: SCHIZOPHRENIA
     Dosage: UNK
  2. ELLEFORE [Suspect]
     Active Substance: DESVENLAFAXINE SUCCINATE
     Indication: SCHIZOPHRENIA
     Dosage: 50 MG, DAILY

REACTIONS (1)
  - Completed suicide [Fatal]
